FAERS Safety Report 8488782-3 (Version None)
Quarter: 2012Q3

REPORT INFORMATION
  Report Type: 
  Country: None (occurrence: None)
  Receive Date: 20120705
  Receipt Date: 20120628
  Transmission Date: 20120928
  Serious: Yes (Hospitalization)
  Sender: FDA-Public Use
  Company Number: BR-ROCHE-1083008

PATIENT
  Sex: Female
  Weight: 64 kg

DRUGS (2)
  1. IMMUNE GLOBULIN NOS [Concomitant]
     Indication: PREMEDICATION
  2. MABTHERA [Suspect]
     Indication: SYSTEMIC LUPUS ERYTHEMATOSUS
     Dates: start: 20110825, end: 20120626

REACTIONS (2)
  - TRACHEAL OBSTRUCTION [None]
  - OEDEMA [None]
